FAERS Safety Report 7295874-3 (Version None)
Quarter: 2011Q1

REPORT INFORMATION
  Report Type: 
  Country: None (occurrence: None)
  Receive Date: 20110211
  Receipt Date: 20110211
  Transmission Date: 20110831
  Serious: No
  Sender: FDA-Public Use
  Company Number: None

PATIENT
  Age: 69 Year
  Sex: Female
  Weight: 86.1834 kg

DRUGS (1)
  1. COVARYX TAB 1.25/2.5, CENTRIX PHARM. [Suspect]
     Indication: HORMONE REPLACEMENT THERAPY
     Dosage: 1 TAB DAILY PO
     Route: 048
     Dates: start: 20090630, end: 20090830

REACTIONS (6)
  - LYMPHADENOPATHY [None]
  - CONDITION AGGRAVATED [None]
  - SKIN ODOUR ABNORMAL [None]
  - NIGHT SWEATS [None]
  - HOT FLUSH [None]
  - HYPERHIDROSIS [None]
